FAERS Safety Report 6329766-0 (Version None)
Quarter: 2009Q3

REPORT INFORMATION
  Report Type: 
  Country: None (occurrence: None)
  Receive Date: 20090826
  Receipt Date: 20090813
  Transmission Date: 20100115
  Serious: Yes (Death, Hospitalization)
  Sender: FDA-Public Use
  Company Number: US-WYE-H10588709

PATIENT
  Age: 56 Year
  Sex: Male

DRUGS (1)
  1. RELISTOR [Suspect]
     Indication: CONSTIPATION
     Dosage: 1 DOSE EVERY 1 TOT
     Route: 058
     Dates: start: 20090101, end: 20090101

REACTIONS (1)
  - RECTAL HAEMORRHAGE [None]
